FAERS Safety Report 10539007 (Version 1)
Quarter: 2014Q4

REPORT INFORMATION
  Report Type: Report from Study
  Country: PT (occurrence: PT)
  Receive Date: 20141023
  Receipt Date: 20141023
  Transmission Date: 20150529
  Serious: Yes (Other)
  Sender: FDA-Public Use
  Company Number: PT-JNJFOC-20141006833

PATIENT
  Age: 83 Year
  Sex: Male

DRUGS (1)
  1. ZYTIGA [Suspect]
     Active Substance: ABIRATERONE ACETATE
     Indication: PROSTATE CANCER METASTATIC
     Route: 048
     Dates: start: 201404

REACTIONS (5)
  - Infection [Unknown]
  - Prostatic specific antigen increased [Recovered/Resolved]
  - Hypertension [Unknown]
  - Hypokalaemia [Unknown]
  - Pneumonia [Unknown]
